FAERS Safety Report 8602605-0 (Version None)
Quarter: 2012Q3

REPORT INFORMATION
  Report Type: 
  Country: None (occurrence: None)
  Receive Date: 20120817
  Receipt Date: 20120803
  Transmission Date: 20120928
  Serious: Yes (Hospitalization, Other)
  Sender: FDA-Public Use
  Company Number: DE-ROCHE-1051444

PATIENT
  Sex: Female

DRUGS (3)
  1. HERCEPTIN [Suspect]
     Indication: BREAST CANCER METASTATIC
     Dates: start: 20060401
  2. ZOMETA [Concomitant]
     Indication: METASTASES TO BONE
     Dates: start: 20060401
  3. BISPHOSPHONATE (UNK INGREDIENTS) [Concomitant]
     Indication: METASTASES TO BONE
     Dates: start: 20060401

REACTIONS (8)
  - METASTASES TO BONE [None]
  - CONGENITAL ARTERIAL MALFORMATION [None]
  - MITRAL VALVE INCOMPETENCE [None]
  - NEUROPATHY PERIPHERAL [None]
  - LEFT VENTRICULAR DYSFUNCTION [None]
  - AORTIC VALVE STENOSIS [None]
  - RIGHT VENTRICULAR FAILURE [None]
  - AORTIC VALVE INCOMPETENCE [None]
